FAERS Safety Report 23097092 (Version 3)
Quarter: 2024Q4

REPORT INFORMATION
  Report Type: Spontaneous
  Country: CA (occurrence: CA)
  Receive Date: 20231023
  Receipt Date: 20241119
  Transmission Date: 20250115
  Serious: Yes (Other)
  Sender: ASSERTIO THERAPEUTICS
  Company Number: 2023-ARA-000092

PATIENT
  Age: 33 Year
  Sex: Male

DRUGS (10)
  1. DICLOFENAC POTASSIUM [Suspect]
     Active Substance: DICLOFENAC POTASSIUM
     Indication: Product used for unknown indication
     Dosage: UNK
     Route: 065
  2. IBUPROFEN [Suspect]
     Active Substance: IBUPROFEN
     Indication: Product used for unknown indication
     Dosage: UNK
     Route: 065
  3. OMALIZUMAB [Suspect]
     Active Substance: OMALIZUMAB
     Indication: Chronic spontaneous urticaria
     Dosage: 300 MG
     Route: 058
  4. OMALIZUMAB [Suspect]
     Active Substance: OMALIZUMAB
     Indication: Chronic spontaneous urticaria
     Dosage: 300 MG
     Route: 058
  5. OMALIZUMAB [Suspect]
     Active Substance: OMALIZUMAB
     Dosage: 300 MG
     Route: 058
  6. OMALIZUMAB [Suspect]
     Active Substance: OMALIZUMAB
     Indication: Chronic spontaneous urticaria
     Dosage: 300 MILLIGRAM
     Route: 058
  7. KETOTIFEN FUMARATE [Concomitant]
     Active Substance: KETOTIFEN FUMARATE
     Indication: Chronic spontaneous urticaria
     Dosage: 1 DOSAGE FORM, QD, 1 EVERY 1 DAYS
     Route: 065
  8. MONTELUKAST [Concomitant]
     Active Substance: MONTELUKAST
     Indication: Chronic spontaneous urticaria
     Dosage: 1 DOSAGE FORM, QD, 1 EVERY 1 DAYS
     Route: 048
  9. RANITIDINE [Concomitant]
     Active Substance: RANITIDINE
     Indication: Product used for unknown indication
     Dosage: 1 DOSAGE FORM, BID
     Route: 048
  10. CETIRIZINE HYDROCHLORIDE [Concomitant]
     Active Substance: CETIRIZINE HYDROCHLORIDE
     Indication: Chronic spontaneous urticaria
     Dosage: 2 DOSAGE FORM, BID
     Route: 048

REACTIONS (6)
  - Inappropriate schedule of product administration [Unknown]
  - Blood pressure systolic increased [Unknown]
  - Drug hypersensitivity [Unknown]
  - Lower respiratory tract infection bacterial [Unknown]
  - Lower respiratory tract infection viral [Unknown]
  - Urticaria [Unknown]
